FAERS Safety Report 10945503 (Version 1)
Quarter: 2015Q1

REPORT INFORMATION
  Report Type: Spontaneous
  Country: US (occurrence: None)
  Receive Date: 20150318
  Receipt Date: 20150318
  Transmission Date: 20150721
  Serious: Yes (Other)
  Sender: FDA-Public Use
  Company Number: 1713747-2015-99924

PATIENT
  Sex: Male

DRUGS (15)
  1. PHENOFIBRATES [Concomitant]
  2. INSULIN [Concomitant]
     Active Substance: INSULIN NOS
  3. FISH OIL [Concomitant]
     Active Substance: FISH OIL
  4. LIBERTY CYCLER SET [Concomitant]
  5. RENVELA [Concomitant]
     Active Substance: SEVELAMER CARBONATE
  6. LODIPINE [Concomitant]
  7. DELFLEX WITH DEXTROSE 2.5% LOW MAGNESIUM LOW CALCIUM [Suspect]
     Active Substance: CALCIUM CHLORIDE\DEXTROSE MONOHYDRATE\MAGNESIUM CHLORIDE\SODIUM CHLORIDE\SODIUM LACTATE
     Indication: PERITONEAL DIALYSIS
     Route: 033
     Dates: start: 20150103, end: 20150112
  8. ALLOPURINOL. [Concomitant]
     Active Substance: ALLOPURINOL
  9. LOSARTAN [Concomitant]
     Active Substance: LOSARTAN
  10. SYNTHROID [Concomitant]
     Active Substance: LEVOTHYROXINE SODIUM
  11. SODIUM BICARBONATE. [Concomitant]
     Active Substance: SODIUM BICARBONATE
  12. LOVASTATIN. [Concomitant]
     Active Substance: LOVASTATIN
  13. ASPIRIN. [Concomitant]
     Active Substance: ASPIRIN
  14. CALCITROL [Concomitant]
     Active Substance: CALCITRIOL
  15. LIBERTY CYCLER [Concomitant]
     Active Substance: DEVICE

REACTIONS (5)
  - Feeling hot [None]
  - Haemoglobin decreased [None]
  - Muscular weakness [None]
  - Paraesthesia [None]
  - Azotaemia [None]

NARRATIVE: CASE EVENT DATE: 20150103
